FAERS Safety Report 5017823-0 (Version None)
Quarter: 2006Q2

REPORT INFORMATION
  Report Type: 
  Country: None (occurrence: None)
  Receive Date: 20060605
  Receipt Date: 20060525
  Transmission Date: 20061013
  Serious: Yes (Other)
  Sender: FDA-Public Use
  Company Number: US-JNJFOC-20060505808

PATIENT
  Age: 80 Year
  Sex: Male

DRUGS (11)
  1. REMICADE [Suspect]
     Route: 042
  2. REMICADE [Suspect]
     Route: 042
  3. REMICADE [Suspect]
     Indication: RHEUMATOID ARTHRITIS
     Route: 042
  4. ULTRAM [Concomitant]
     Indication: PAIN
  5. PREDNISONE [Concomitant]
     Indication: RHEUMATOID ARTHRITIS
  6. CRESTOR [Concomitant]
     Indication: BLOOD CHOLESTEROL
  7. ATENOLOL [Concomitant]
     Indication: HYPERTENSION
  8. TYLENOL (GELTAB) [Concomitant]
  9. TYLENOL (GELTAB) [Concomitant]
     Indication: PREMEDICATION
  10. BENADRYL [Concomitant]
  11. BENADRYL [Concomitant]
     Indication: PREMEDICATION

REACTIONS (5)
  - BUNDLE BRANCH BLOCK LEFT [None]
  - ERYTHEMA [None]
  - INFUSION RELATED REACTION [None]
  - MYOCARDIAL INFARCTION [None]
  - PNEUMONIA [None]
